FAERS Safety Report 9067998 (Version 1)
Quarter: 2013Q1

REPORT INFORMATION
  Report Type: Spontaneous
  Country: US (occurrence: US)
  Receive Date: 20130128
  Receipt Date: 20130128
  Transmission Date: 20140127
  Serious: Yes (Other)
  Sender: FDA-Public Use
  Company Number: US-WATSON-2012-19979

PATIENT
  Age: 45 Year
  Sex: Male

DRUGS (2)
  1. MORPHINE SULFATE (UNKNOWN) [Suspect]
     Indication: PRODUCT USED FOR UNKNOWN INDICATION
     Dosage: 1-2 MG/DAY, 12 MG/DAY, PEAK DOSE 32 MG/DAY
     Route: 037
  2. CLONIDINE [Concomitant]
     Indication: PRODUCT USED FOR UNKNOWN INDICATION
     Dosage: UNK
     Route: 065

REACTIONS (2)
  - Injection site granuloma [Recovered/Resolved]
  - Spinal cord compression [Recovered/Resolved]
